FAERS Safety Report 5253914-7 (Version None)
Quarter: 2007Q1

REPORT INFORMATION
  Report Type: 
  Country: None (occurrence: None)
  Receive Date: 20070228
  Receipt Date: 20070228
  Transmission Date: 20070707
  Serious: Yes (Hospitalization)
  Sender: FDA-Public Use
  Company Number: None

PATIENT
  Age: 54 Year
  Sex: Male
  Weight: 83.9154 kg

DRUGS (2)
  1. VIOXX [Suspect]
     Indication: ARTHRITIS
     Dosage: 25MG 2 TIMES DAILY
     Dates: start: 20030201
  2. VIOXX [Suspect]
     Indication: ARTHRITIS
     Dosage: 25MG 2 TIMES DAILY
     Dates: start: 20040601

REACTIONS (2)
  - MYOCARDIAL INFARCTION [None]
  - NECK PAIN [None]
